FAERS Safety Report 20459012 (Version 1)
Quarter: 2022Q1

REPORT INFORMATION
  Report Type: Spontaneous
  Country: US (occurrence: US)
  Receive Date: 20220211
  Receipt Date: 20220211
  Transmission Date: 20220424
  Serious: No
  Sender: FDA-Public Use
  Company Number: US-SA-SAC20220203000592

PATIENT
  Sex: Female

DRUGS (15)
  1. AUBAGIO [Suspect]
     Active Substance: TERIFLUNOMIDE
     Indication: Multiple sclerosis
     Dosage: 14 MG, QD
     Route: 048
     Dates: start: 20211227
  2. BACLOFEN [Concomitant]
     Active Substance: BACLOFEN
  3. CHANTIX [Concomitant]
     Active Substance: VARENICLINE TARTRATE
  4. FLUOXETINE [Concomitant]
     Active Substance: FLUOXETINE HYDROCHLORIDE
  5. GABAPENTIN [Concomitant]
     Active Substance: GABAPENTIN
  6. IBUPROFEN [Concomitant]
     Active Substance: IBUPROFEN
  7. PANTOPRAZOLE [Concomitant]
     Active Substance: PANTOPRAZOLE
  8. RIZATRIPTAN [Concomitant]
     Active Substance: RIZATRIPTAN
  9. SIMVASTATIN [Concomitant]
     Active Substance: SIMVASTATIN
  10. TECFIDERA [Concomitant]
     Active Substance: DIMETHYL FUMARATE
  11. TOLTERODINE [Concomitant]
     Active Substance: TOLTERODINE
  12. TRAMADOL HYDROCHLORIDE [Concomitant]
     Active Substance: TRAMADOL HYDROCHLORIDE
  13. TRAZODONE [Concomitant]
     Active Substance: TRAZODONE HYDROCHLORIDE
  14. PENICILLIN V POTASSIUM [Concomitant]
     Active Substance: PENICILLIN V POTASSIUM
  15. METHYLPHENIDATE [Concomitant]
     Active Substance: METHYLPHENIDATE

REACTIONS (1)
  - Product dose omission issue [Recovered/Resolved]
